FAERS Safety Report 24043557 (Version 1)
Quarter: 2024Q3

REPORT INFORMATION
  Report Type: Spontaneous
  Country: US (occurrence: US)
  Receive Date: 20240703
  Receipt Date: 20240703
  Transmission Date: 20241016
  Serious: No
  Sender: AMGEN
  Company Number: US-AMGEN-USASP2024130074

PATIENT
  Age: 64 Year
  Sex: Male

DRUGS (2)
  1. TEPEZZA [Suspect]
     Active Substance: TEPROTUMUMAB-TRBW
     Indication: Toxic goitre
     Dosage: 660 MILLIGRAM  (1 DOSE)
     Route: 042
     Dates: start: 20240506
  2. TEPEZZA [Suspect]
     Active Substance: TEPROTUMUMAB-TRBW
     Dosage: 1320 MILLIGRAM, Q3WK, 7 DOSES
     Route: 042
     Dates: start: 2024

REACTIONS (3)
  - Off label use [Unknown]
  - Hypoacusis [Unknown]
  - Tinnitus [Unknown]

NARRATIVE: CASE EVENT DATE: 20240506
